FAERS Safety Report 15751735 (Version 1)
Quarter: 2018Q4

REPORT INFORMATION
  Report Type: Report from Study
  Country: TW (occurrence: TW)
  Receive Date: 20181221
  Receipt Date: 20181221
  Transmission Date: 20190205
  Serious: Yes (Life-Threatening, Hospitalization, Other)
  Sender: FDA-Public Use
  Company Number: TW-AMGEN-TWNCT2018181928

PATIENT
  Age: 74 Year
  Sex: Female
  Weight: 60.9 kg

DRUGS (43)
  1. BROMHEXINE [Concomitant]
     Active Substance: BROMHEXINE
     Dosage: 8 MG, UNK
     Dates: start: 20181015, end: 20181023
  2. ENOXAPARIN [Concomitant]
     Active Substance: ENOXAPARIN
     Dosage: 60 MG, UNK
     Dates: start: 20181113, end: 20181113
  3. ZOLPIDEM [Concomitant]
     Active Substance: ZOLPIDEM\ZOLPIDEM TARTRATE
     Dosage: 5 MG, UNK
     Dates: start: 20180124
  4. PIPERACILLIN. [Concomitant]
     Active Substance: PIPERACILLIN SODIUM
     Dosage: 3000 MG, UNK
     Dates: start: 20181117, end: 20181121
  5. AMIODARONE [Concomitant]
     Active Substance: AMIODARONE
     Dosage: 150 MG, UNK
     Dates: start: 20181117, end: 20181117
  6. SODIUM CHLORIDE. [Concomitant]
     Active Substance: SODIUM CHLORIDE
     Dosage: 500-1000 ML, UNK
     Dates: start: 20181114, end: 20181204
  7. TEARS NATURALE FREE [Concomitant]
     Active Substance: DEXTRAN 70\HYPROMELLOSE 2910 (4000 MPA.S)
     Dosage: 1 GTT, UNK
     Route: 047
     Dates: start: 20131114
  8. LACTATED RINGERS SOLUTION [Concomitant]
     Active Substance: CALCIUM CHLORIDE\POTASSIUM CHLORIDE\SODIUM CHLORIDE\SODIUM LACTATE
     Dosage: 500 ML, UNK
     Dates: start: 20181117, end: 20181117
  9. ACETYLCYSTEINE. [Concomitant]
     Active Substance: ACETYLCYSTEINE
     Dosage: 600 MG, UNK
     Dates: start: 20171212
  10. DARATUMUMAB [Suspect]
     Active Substance: DARATUMUMAB
     Indication: PLASMA CELL MYELOMA
     Dosage: UNK
     Route: 065
  11. DEXTROMETHORPHAN [Concomitant]
     Active Substance: DEXTROMETHORPHAN
     Dosage: 30 MG, UNK
     Dates: start: 20181015, end: 20181023
  12. LEVOCETIRIZINE [Concomitant]
     Active Substance: LEVOCETIRIZINE
     Dosage: 5 MG, UNK
     Dates: start: 20181015, end: 20181023
  13. ESOMEPRAZOLE. [Concomitant]
     Active Substance: ESOMEPRAZOLE MAGNESIUM
     Dosage: 40 MG, UNK
     Route: 048
     Dates: start: 20171206
  14. CARFILZOMIB [Suspect]
     Active Substance: CARFILZOMIB
     Indication: PLASMA CELL MYELOMA
     Dosage: UNK UNK, PER CHEMO REGIM
     Route: 042
     Dates: start: 20171206
  15. DEXAMETHASONE. [Concomitant]
     Active Substance: DEXAMETHASONE
     Indication: PLASMA CELL MYELOMA
     Dosage: 20 MG, UNK
     Dates: start: 20171206
  16. INDAPAMIDE. [Concomitant]
     Active Substance: INDAPAMIDE
     Dosage: 1.5 MG, UNK
     Dates: start: 20180919
  17. CEFTAZIDIME. [Concomitant]
     Active Substance: CEFTAZIDIME
     Dosage: 1000 MG, UNK
     Dates: start: 20181115, end: 20181116
  18. NICAMETATE CITRATE [Concomitant]
     Dosage: 50 MG, UNK
     Dates: start: 20150306
  19. DICLOXACILLIN [Concomitant]
     Active Substance: DICLOXACILLIN
     Dosage: 250 MG, UNK
     Dates: start: 20180606
  20. DIOSMECTITE [Concomitant]
     Active Substance: MONTMORILLONITE
     Dosage: 1 UNK, UNK
     Dates: start: 20180723, end: 20181204
  21. POTASSIUM GLUCONATE [Concomitant]
     Active Substance: POTASSIUM GLUCONATE
     Dosage: 2 UNK, UNK
     Dates: start: 20180801
  22. ACETAMINOPHEN. [Concomitant]
     Active Substance: ACETAMINOPHEN
     Dosage: 500 MG, UNK
     Dates: start: 20181015
  23. CODEINE [Concomitant]
     Active Substance: CODEINE
     Dosage: 30 MG, UNK
     Dates: start: 20181023, end: 20181029
  24. FLOMOXEF [Concomitant]
     Active Substance: FLOMOXEF
     Dosage: 1000 MG, UNK
     Dates: start: 20181113, end: 20181114
  25. MORPHINE [Concomitant]
     Active Substance: MORPHINE
     Dosage: 10 MG, UNK
     Dates: start: 20181113, end: 20181113
  26. FLUCONAZOLE. [Concomitant]
     Active Substance: FLUCONAZOLE
     Dosage: 300 MG, UNK
     Dates: start: 20181121, end: 20181121
  27. NORMAL SALINE [Concomitant]
     Active Substance: SODIUM CHLORIDE
     Dosage: 250 ML, UNK
     Route: 042
     Dates: start: 20171206
  28. TIMOLOL. [Concomitant]
     Active Substance: TIMOLOL
     Dosage: 1 GTT, UNK
     Route: 047
     Dates: start: 20180301
  29. BETAHISTINE MESILATE [Concomitant]
     Active Substance: BETAHISTINE MESILATE
     Dosage: 12 MG, UNK
     Dates: start: 20160502
  30. OTILONIUM [Concomitant]
     Dosage: 40 MG AND 1 UNK, UNK
     Dates: start: 20180801, end: 20181204
  31. NITROGLYCERIN. [Concomitant]
     Active Substance: NITROGLYCERIN
     Dosage: 0.6 MG, UNK
     Dates: start: 20181025
  32. HYDROXYZINE [Concomitant]
     Active Substance: HYDROXYZINE HYDROCHLORIDE
     Dosage: 25 MG, UNK
     Dates: start: 20180704
  33. THEOPHYLLINE [Concomitant]
     Active Substance: THEOPHYLLINE ANHYDROUS
     Dosage: 125 MG, UNK
     Dates: start: 20181023, end: 20181029
  34. ACTEIN [Concomitant]
     Dosage: 1 UNK, UNK
     Dates: start: 20181023, end: 20181029
  35. ASPIRIN. [Concomitant]
     Active Substance: ASPIRIN
     Dosage: 300 MG, UNK
     Dates: start: 20181113, end: 20181113
  36. CLOPIDOGREL [Concomitant]
     Active Substance: CLOPIDOGREL BISULFATE
     Dosage: 300 MG, UNK
     Dates: start: 20181113, end: 20181113
  37. AMPICILLIN AND SULBACTAM [Concomitant]
     Active Substance: AMPICILLIN SODIUM\SULBACTAM SODIUM
     Dosage: 1500 MG, UNK
     Dates: start: 20181114, end: 20181117
  38. ISOSORBIDE-5-MONONITRATE [Concomitant]
     Active Substance: ISOSORBIDE MONONITRATE
     Dosage: 10 MG, UNK
     Dates: start: 20181114, end: 20181119
  39. CARFILZOMIB [Suspect]
     Active Substance: CARFILZOMIB
     Dosage: 72 MG, PER CHEMO REGIM
     Route: 042
  40. ACYCLOVIR. [Concomitant]
     Active Substance: ACYCLOVIR
     Dosage: 200 MG, UNK
     Route: 048
     Dates: start: 20171206
  41. OLMESARTAN MEDOXOMIL. [Concomitant]
     Active Substance: OLMESARTAN MEDOXOMIL
     Dosage: 10 MG, UNK
     Dates: start: 20180705
  42. LAMIVUDINE. [Concomitant]
     Active Substance: LAMIVUDINE
     Dosage: 100 MG, UNK
     Dates: start: 20140715
  43. FUROSEMIDE. [Concomitant]
     Active Substance: FUROSEMIDE
     Dosage: 40 MG, UNK
     Dates: start: 20181026, end: 20181120

REACTIONS (1)
  - Acute kidney injury [Not Recovered/Not Resolved]

NARRATIVE: CASE EVENT DATE: 20181204
